FAERS Safety Report 9181107 (Version 1)
Quarter: 2013Q1

REPORT INFORMATION
  Report Type: Spontaneous
  Country: US (occurrence: US)
  Receive Date: 20130322
  Receipt Date: 20130322
  Transmission Date: 20140127
  Serious: Yes (Hospitalization)
  Sender: FDA-Public Use
  Company Number: US-BAYER-2013-033304

PATIENT
  Age: 17 Year
  Sex: Female
  Weight: 152 kg

DRUGS (4)
  1. YAZ [Suspect]
     Dosage: UNK
  2. CITALOPRAM [Concomitant]
     Dosage: 40 MG, DAILY
  3. LEVOTHYROXINE [Concomitant]
     Dosage: 150 MCG, UNK
  4. PANTOPRAZOLE [Concomitant]
     Dosage: 40 MG, DAILY

REACTIONS (1)
  - Pulmonary embolism [None]
